FAERS Safety Report 4559459-1 (Version None)
Quarter: 2005Q1

REPORT INFORMATION
  Report Type: 
  Country: None (occurrence: None)
  Receive Date: 20050119
  Receipt Date: 20041213
  Transmission Date: 20050727
  Serious: Yes (Death, Other)
  Sender: FDA-Public Use
  Company Number: 2004JP001455

PATIENT
  Age: 52 Year
  Sex: Female
  Weight: 61 kg

DRUGS (3)
  1. PROGRAF [Suspect]
     Indication: BONE MARROW TRANSPLANT
     Dosage: INTRAVENOUS
     Route: 042
     Dates: start: 20040608, end: 20041005
  2. BACTRAMIN (SULFAMETHOXAZOLE, TRIMETHOPRIM) INJECTION [Concomitant]
  3. ACYCLOVIR [Concomitant]

REACTIONS (2)
  - HYPERTENSION [None]
  - INFECTION IN AN IMMUNOCOMPROMISED HOST [None]
